FAERS Safety Report 9500675 (Version 1)
Quarter: 2013Q1

REPORT INFORMATION
  Report Type: Spontaneous
  Country: US (occurrence: None)
  Receive Date: 20130107
  Receipt Date: 20130107
  Transmission Date: 20140127
  Serious: No
  Sender: FDA-Public Use
  Company Number: PHEH2012US023341

PATIENT
  Sex: Female

DRUGS (1)
  1. GILENYA (FINGOLIMOD) CAPSULE, 0.5MG [Suspect]
     Route: 048

REACTIONS (5)
  - Abdominal pain upper [None]
  - Laryngitis [None]
  - Ear infection [None]
  - Nasopharyngitis [None]
  - Accidental overdose [None]
